FAERS Safety Report 5856597-8 (Version None)
Quarter: 2008Q3

REPORT INFORMATION
  Report Type: 
  Country: None (occurrence: None)
  Receive Date: 20080825
  Receipt Date: 20080820
  Transmission Date: 20090109
  Serious: Yes (Death, Other)
  Sender: FDA-Public Use
  Company Number: GB-MERCK-0808GBR00045

PATIENT
  Sex: Female

DRUGS (3)
  1. ZOCOR [Suspect]
     Route: 048
  2. DIGOXIN [Concomitant]
     Route: 065
  3. DIPYRIDAMOLE [Concomitant]
     Route: 065

REACTIONS (2)
  - CEREBROVASCULAR ACCIDENT [None]
  - DEATH [None]
